FAERS Safety Report 22054475 (Version 2)
Quarter: 2023Q1

REPORT INFORMATION
  Report Type: Spontaneous
  Country: CN (occurrence: CN)
  Receive Date: 20230302
  Receipt Date: 20230329
  Transmission Date: 20230417
  Serious: Yes (Other)
  Sender: FDA-Public Use
  Company Number: CN-BEH-2023155749

PATIENT
  Age: 63 Year
  Sex: Male
  Weight: 48.5 kg

DRUGS (2)
  1. ALBURX [Suspect]
     Active Substance: ALBUMIN HUMAN
     Indication: Hypoproteinaemia
     Dosage: 40 GRAM, QD
     Route: 041
     Dates: start: 20230130, end: 20230130
  2. ALBURX [Suspect]
     Active Substance: ALBUMIN HUMAN
     Indication: Oedema
     Dosage: 40 GRAM, QD
     Route: 041
     Dates: start: 20230130, end: 20230130

REACTIONS (5)
  - Acute pulmonary oedema [Recovering/Resolving]
  - Cough [Recovering/Resolving]
  - Tachypnoea [Recovering/Resolving]
  - Chest discomfort [Recovering/Resolving]
  - Dyspnoea [Recovering/Resolving]

NARRATIVE: CASE EVENT DATE: 20230130
